FAERS Safety Report 17803543 (Version 2)
Quarter: 2020Q3

REPORT INFORMATION
  Report Type: Report from Study
  Country: None (occurrence: US)
  Receive Date: 20200519
  Receipt Date: 20200804
  Transmission Date: 20201102
  Serious: Yes (Hospitalization, Other)
  Sender: FDA-Public Use
  Company Number: US-ABBVIE-19K-163-2965692-00

PATIENT
  Age: 46 Year
  Sex: Male

DRUGS (5)
  1. HUMIRA [Suspect]
     Active Substance: ADALIMUMAB
     Route: 058
     Dates: start: 202001, end: 202003
  2. HUMIRA [Suspect]
     Active Substance: ADALIMUMAB
     Indication: CROHN^S DISEASE
     Route: 058
     Dates: start: 201807, end: 201908
  3. HUMIRA [Suspect]
     Active Substance: ADALIMUMAB
     Route: 058
     Dates: start: 202003
  4. HUMIRA [Suspect]
     Active Substance: ADALIMUMAB
     Route: 058
     Dates: start: 20190819, end: 202001
  5. CHANTIX [Concomitant]
     Active Substance: VARENICLINE TARTRATE
     Indication: EX-TOBACCO USER

REACTIONS (5)
  - Diverticulitis [Recovering/Resolving]
  - Adverse reaction [Unknown]
  - Colostomy closure [Recovering/Resolving]
  - Colostomy [Recovering/Resolving]
  - Weight decreased [Not Recovered/Not Resolved]

NARRATIVE: CASE EVENT DATE: 2019
